FAERS Safety Report 18809757 (Version 2)
Quarter: 2021Q1

REPORT INFORMATION
  Report Type: Spontaneous
  Country: US (occurrence: US)
  Receive Date: 20210129
  Receipt Date: 20210217
  Transmission Date: 20210419
  Serious: No
  Sender: FDA-Public Use
  Company Number: US-BAYER-2021-039212

PATIENT
  Age: 62 Year
  Sex: Female

DRUGS (2)
  1. CLIMARA [Suspect]
     Active Substance: ESTRADIOL
     Route: 062
  2. PROGESTERONE. [Suspect]
     Active Substance: PROGESTERONE
     Dosage: 1 MG

REACTIONS (6)
  - Product physical issue [None]
  - Product adhesion issue [None]
  - Menopausal symptoms [None]
  - Night sweats [None]
  - Cold sweat [None]
  - Wrong technique in product usage process [None]
